FAERS Safety Report 9699792 (Version 2)
Quarter: 2013Q4

REPORT INFORMATION
  Report Type: Spontaneous
  Country: US (occurrence: US)
  Receive Date: 20131120
  Receipt Date: 20131227
  Transmission Date: 20140711
  Serious: No
  Sender: FDA-Public Use
  Company Number: US-TEVA-443972USA

PATIENT
  Age: 50 Year
  Sex: Female

DRUGS (1)
  1. COPAXONE [Suspect]
     Indication: PRODUCT USED FOR UNKNOWN INDICATION

REACTIONS (1)
  - Vaginal odour [Not Recovered/Not Resolved]
